FAERS Safety Report 23804562 (Version 3)
Quarter: 2024Q3

REPORT INFORMATION
  Report Type: Spontaneous
  Country: IT (occurrence: IT)
  Receive Date: 20240501
  Receipt Date: 20240807
  Transmission Date: 20241016
  Serious: Yes (Hospitalization, Other)
  Sender: MYLAN
  Company Number: None

PATIENT
  Age: 58 Year
  Sex: Male

DRUGS (2)
  1. ALPRAZOLAM [Suspect]
     Active Substance: ALPRAZOLAM
     Indication: Product used for unknown indication
     Dosage: 13 MILLIGRAM (TAKING OF 13 TABLETS OF ALPRAZOLAM OF 1 MG)
     Route: 048
     Dates: start: 20240313, end: 20240313
  2. BROMAZEPAM [Suspect]
     Active Substance: BROMAZEPAM
     Indication: Product used for unknown indication
     Dosage: 5 GTT DROPS (TAKING OF 2.5 MG/ML OF BROMAZEPAM)
     Route: 048
     Dates: start: 20240313, end: 20240313

REACTIONS (5)
  - Toxicity to various agents [Unknown]
  - Intentional self-injury [Unknown]
  - Drug abuse [Recovered/Resolved]
  - Abdominal pain [Unknown]
  - Confusional state [Unknown]

NARRATIVE: CASE EVENT DATE: 20240313
